FAERS Safety Report 21230634 (Version 1)
Quarter: 2022Q3

REPORT INFORMATION
  Report Type: Spontaneous
  Country: US (occurrence: None)
  Receive Date: 20220818
  Receipt Date: 20220818
  Transmission Date: 20221027
  Serious: Yes (Hospitalization)
  Sender: FDA-Public Use
  Company Number: US-MICRO LABS LIMITED-ML2022-04133

PATIENT
  Age: 57 Year
  Sex: Female

DRUGS (6)
  1. APIXABAN [Suspect]
     Active Substance: APIXABAN
     Indication: Anticoagulant therapy
     Route: 048
  2. APIXABAN [Suspect]
     Active Substance: APIXABAN
     Dosage: DOSE INCREASED
     Route: 048
  3. APIXABAN [Suspect]
     Active Substance: APIXABAN
     Dosage: AFTER 7 DAYS OF APIXABAN 10 MG TWICE DAILY, DOSE WAS DECREASED TO 5 MG TWICE DAILY
     Route: 048
  4. DEXAMETHASONE [Suspect]
     Active Substance: DEXAMETHASONE
     Route: 048
  5. ASPIRIN [Concomitant]
     Active Substance: ASPIRIN
     Route: 048
  6. ASPIRIN [Concomitant]
     Active Substance: ASPIRIN
     Dosage: INCREASE HER DOSE OF ASPIRIN FROM 81 TO 325 MG DAILY

REACTIONS (1)
  - Hypercoagulation [Unknown]
